FAERS Safety Report 12850475 (Version 1)
Quarter: 2016Q4

REPORT INFORMATION
  Report Type: Spontaneous
  Country: US (occurrence: US)
  Receive Date: 20161014
  Receipt Date: 20161014
  Transmission Date: 20170207
  Serious: No
  Sender: FDA-Public Use
  Company Number: US-BAYER-2016-198822

PATIENT
  Age: 95 Year
  Sex: Female

DRUGS (2)
  1. MIRALAX [Suspect]
     Active Substance: POLYETHYLENE GLYCOL 3350
     Dosage: CONSUMER TOOK THE PRODUCT ABOUT 3 OR 4 MONTHS
     Route: 048
  2. MIRALAX [Suspect]
     Active Substance: POLYETHYLENE GLYCOL 3350
     Dosage: SHE REDUCED THE FULL AMOUNT; UNTIL NOW SHE IS TAKING HALF A TEASPOON
     Route: 048

REACTIONS (2)
  - Product use issue [None]
  - Intentional product use issue [None]
